FAERS Safety Report 14200368 (Version 1)
Quarter: 2017Q4

REPORT INFORMATION
  Report Type: Report from Study
  Country: KR (occurrence: KR)
  Receive Date: 20171117
  Receipt Date: 20171117
  Transmission Date: 20180321
  Serious: Yes (Hospitalization, Other)
  Sender: FDA-Public Use
  Company Number: KR-PFIZER INC-2017486590

PATIENT
  Age: 75 Year
  Sex: Male
  Weight: 54.7 kg

DRUGS (12)
  1. ASPIRIN /00002701/ [Concomitant]
     Active Substance: ASPIRIN
     Indication: PROPHYLAXIS
     Dosage: 100 MG, 1X/DAY
     Route: 048
     Dates: start: 20160510
  2. PENIRAMIN [Concomitant]
     Indication: PREMEDICATION
     Dosage: 4 MG, CYCLIC(ONCE PER 2 WEEKS)
     Route: 042
     Dates: start: 20170216, end: 20171108
  3. ISOKET [Concomitant]
     Active Substance: ISOSORBIDE DINITRATE
     Indication: PROPHYLAXIS
     Dosage: 40 MG, 2X/DAY
     Route: 048
     Dates: start: 20160216
  4. BERAST [Concomitant]
     Indication: PROPHYLAXIS
     Dosage: 0.04 MG, 3X/DAY
     Route: 048
     Dates: start: 20160212
  5. AMLODIPINE [Concomitant]
     Active Substance: AMLODIPINE BESYLATE
     Indication: HYPERTENSION
     Dosage: 5 MG, 1X/DAY
     Route: 048
     Dates: start: 2000
  6. AVELUMAB [Suspect]
     Active Substance: AVELUMAB
     Indication: RENAL CELL CARCINOMA
     Dosage: 10 MG/KG, CYCLIC(ONCE PER 2 WEEKS)
     Route: 042
     Dates: start: 20161024, end: 20171108
  7. TRAMOL /00020001/ [Concomitant]
     Indication: PREMEDICATION
     Dosage: 650 MG, CYCLIC(ONCE PER 2 WEEKS)
     Route: 048
     Dates: start: 20170216, end: 20171108
  8. ULTRACET [Concomitant]
     Active Substance: ACETAMINOPHEN\TRAMADOL HYDROCHLORIDE
     Indication: ARTHRALGIA
     Dosage: 725 MG, AS NEEDED
     Route: 048
     Dates: start: 20161208
  9. AXITINIB [Suspect]
     Active Substance: AXITINIB
     Indication: RENAL CELL CARCINOMA
     Dosage: 5 MG, 2X/DAY
     Route: 048
     Dates: start: 20161024, end: 20170201
  10. DEXTROSE + SODIUM CHLORIDE [Concomitant]
     Indication: HYPOGLYCAEMIA
     Dosage: 1000 ML, 1X/DAY
     Route: 042
     Dates: start: 20171104, end: 20171104
  11. AXITINIB [Suspect]
     Active Substance: AXITINIB
     Dosage: 3 MG, 2X/DAY
     Route: 048
     Dates: start: 20170202, end: 20171108
  12. DEXTROSE. [Concomitant]
     Active Substance: DEXTROSE
     Indication: HYPOGLYCAEMIA
     Dosage: 50 ML, 1X/DAY
     Route: 042
     Dates: start: 20171104, end: 20171104

REACTIONS (1)
  - Acute kidney injury [Recovered/Resolved]

NARRATIVE: CASE EVENT DATE: 20171109
